FAERS Safety Report 8120749 (Version 5)
Quarter: 2016Q2

REPORT INFORMATION
  Report Type: Report from Study
  Country: BE (occurrence: BE)
  Receive Date: 20110906
  Receipt Date: 20160531
  Transmission Date: 20160815
  Serious: Yes (Hospitalization, Other)
  Sender: FDA-Public Use
  Company Number: BE-JNJFOC-20110900170

PATIENT
  Age: 34 Year
  Sex: Female
  Weight: 49 kg

DRUGS (7)
  1. NICOTIBINE [Concomitant]
     Active Substance: ISONIAZID
     Indication: PROPHYLAXIS
     Dates: start: 20090613, end: 20091213
  2. REMICADE [Suspect]
     Active Substance: INFLIXIMAB
     Indication: COLITIS
     Route: 042
     Dates: start: 20071012, end: 20081213
  3. RIFADINE [Concomitant]
     Active Substance: RIFAMPIN
     Indication: PROPHYLAXIS
     Dates: start: 20090613, end: 20091213
  4. REMICADE [Suspect]
     Active Substance: INFLIXIMAB
     Indication: COLITIS
     Route: 042
     Dates: start: 20090706
  5. REMICADE [Suspect]
     Active Substance: INFLIXIMAB
     Indication: COLITIS
     Route: 042
     Dates: start: 20120201
  6. REMICADE [Suspect]
     Active Substance: INFLIXIMAB
     Indication: COLITIS
     Route: 042
     Dates: end: 20110829
  7. METHOTREXATE [Concomitant]
     Active Substance: METHOTREXATE
     Indication: COLITIS
     Dates: start: 200606, end: 20090705

REACTIONS (2)
  - Glioma [Recovered/Resolved]
  - Latent tuberculosis [Recovered/Resolved]

NARRATIVE: CASE EVENT DATE: 20090612
